FAERS Safety Report 4275065-0 (Version None)
Quarter: 2004Q1

REPORT INFORMATION
  Report Type: 
  Country: None (occurrence: None)
  Receive Date: 20040116
  Receipt Date: 20040109
  Transmission Date: 20041129
  Serious: Yes (Hospitalization)
  Sender: FDA-Public Use
  Company Number: FRP04000033

PATIENT
  Age: 73 Year
  Sex: Female

DRUGS (5)
  1. ACTONEL [Suspect]
     Dosage: 35 MG, 1/WEEK, ORAL
     Route: 048
     Dates: start: 20030315, end: 20030903
  2. TAREG (VALSARTAN) [Suspect]
     Dosage: 40 MG, DAILY, ORAL
     Route: 048
     Dates: start: 20000315, end: 20030903
  3. COLCHICINE                                  (COLCHICINE) [Concomitant]
  4. ISKEDYL (RAUBASINE, DIHYDROERGOCRISTINE MESILATE) [Concomitant]
  5. TEGRETOL [Concomitant]

REACTIONS (2)
  - CHONDROCALCINOSIS [None]
  - HEPATITIS [None]
